FAERS Safety Report 7382202-8 (Version None)
Quarter: 2011Q1

REPORT INFORMATION
  Report Type: 
  Country: None (occurrence: None)
  Receive Date: 20110329
  Receipt Date: 20101228
  Transmission Date: 20110831
  Serious: No
  Sender: FDA-Public Use
  Company Number: US-BAYER-2011-025996

PATIENT
  Sex: Male
  Weight: 36 kg

DRUGS (1)
  1. ONE A DAY TEEN ADVANTAGE FOR HIM [Suspect]
     Indication: VITAMIN SUPPLEMENTATION
     Dosage: 10 DF, ONCE, DAILY
     Route: 048
     Dates: start: 20100101

REACTIONS (1)
  - ABDOMINAL PAIN UPPER [None]
